FAERS Safety Report 9010329 (Version 1)
Quarter: 2013Q1

REPORT INFORMATION
  Report Type: Spontaneous
  Country: IR (occurrence: IR)
  Receive Date: 20130110
  Receipt Date: 20130110
  Transmission Date: 20140127
  Serious: Yes (Life-Threatening, Hospitalization)
  Sender: FDA-Public Use
  Company Number: IR-009507513-1301IRN003211

PATIENT
  Age: 65 Year
  Sex: Male

DRUGS (6)
  1. INTEGRILIN [Suspect]
     Dosage: 180 MICROGRAM, TWO BOLUS DOSES
     Dates: start: 20130105
  2. INTEGRILIN [Suspect]
     Dosage: 2 MICROGRAM PER KILOGRAM, PER MINUTE
     Dates: start: 20130105
  3. HEPARIN [Concomitant]
     Dosage: UNK
     Route: 042
  4. FUROSEMIDE [Concomitant]
  5. PLAVIX [Concomitant]
  6. [THERAPY UNSPECIFIED] [Concomitant]
     Dosage: POLY MEDICATIONS

REACTIONS (2)
  - Cardiac arrest [Recovered/Resolved]
  - Subcutaneous haematoma [Unknown]
